FAERS Safety Report 10957578 (Version 1)
Quarter: 2015Q1

REPORT INFORMATION
  Report Type: Spontaneous
  Country: US (occurrence: US)
  Receive Date: 20150326
  Receipt Date: 20150326
  Transmission Date: 20150721
  Serious: Yes (Other)
  Sender: FDA-Public Use
  Company Number: US-PERRIGO-15US003055

PATIENT
  Age: 10 Year
  Sex: Male
  Weight: 22.68 kg

DRUGS (1)
  1. POLYETHYLENE GLYCOL 3350 17G 306 [Suspect]
     Active Substance: POLYETHYLENE GLYCOLS
     Indication: CONSTIPATION
     Dosage: 17 G, QD
     Route: 048
     Dates: start: 201411, end: 20150314

REACTIONS (6)
  - Drug administered to patient of inappropriate age [Recovered/Resolved]
  - Dyskinesia [None]
  - Feeling abnormal [Unknown]
  - Muscle contractions involuntary [Recovering/Resolving]
  - Incorrect drug administration duration [Recovered/Resolved]
  - Seizure [Recovering/Resolving]

NARRATIVE: CASE EVENT DATE: 201411
